FAERS Safety Report 7588697-9 (Version None)
Quarter: 2011Q3

REPORT INFORMATION
  Report Type: 
  Country: None (occurrence: None)
  Receive Date: 20110705
  Receipt Date: 20110622
  Transmission Date: 20111222
  Serious: Yes (Hospitalization, Other)
  Sender: FDA-Public Use
  Company Number: US-ELI_LILLY_AND_COMPANY-US201104002998

PATIENT
  Sex: Female

DRUGS (6)
  1. FORTEO [Suspect]
     Dosage: 20 UG, QD
     Route: 065
     Dates: start: 20110411
  2. FORTEO [Suspect]
     Indication: OSTEOPOROSIS
     Dosage: 20 UG, QD
     Route: 065
     Dates: start: 20110404, end: 20110405
  3. CORTISONE ACETATE [Concomitant]
  4. FORTEO [Suspect]
     Dosage: 20 UG, QD
     Route: 065
  5. FORTEO [Suspect]
     Dosage: 20 UG, QD
     Route: 065
  6. EVISTA [Suspect]
     Dosage: UNK, UNKNOWN
     Route: 065

REACTIONS (14)
  - FALL [None]
  - INTENTIONAL DRUG MISUSE [None]
  - RETCHING [None]
  - ABDOMINAL DISCOMFORT [None]
  - NAUSEA [None]
  - FEMUR FRACTURE [None]
  - HIP FRACTURE [None]
  - HEART RATE INCREASED [None]
  - VOMITING [None]
  - DIZZINESS [None]
  - MALAISE [None]
  - CONTUSION [None]
  - URINARY TRACT INFECTION [None]
  - FATIGUE [None]
